FAERS Safety Report 9495645 (Version 1)
Quarter: 2013Q3

REPORT INFORMATION
  Report Type: Spontaneous
  Country: DE (occurrence: DE)
  Receive Date: 20130903
  Receipt Date: 20130903
  Transmission Date: 20140515
  Serious: Yes (Death, Life-Threatening)
  Sender: FDA-Public Use
  Company Number: DE-TEVA-429059GER

PATIENT
  Sex: Female

DRUGS (4)
  1. PREDNISOLON [Suspect]
     Indication: CHRONIC OBSTRUCTIVE PULMONARY DISEASE
     Dosage: 2.5 MILLIGRAM DAILY;
     Route: 048
     Dates: start: 20130803
  2. ARIXTRA [Suspect]
     Indication: PELVIC VENOUS THROMBOSIS
     Dosage: 1 DOSAGE FORMS DAILY;
     Route: 058
     Dates: start: 20130803
  3. SPIRO 50 [Concomitant]
     Indication: CHRONIC OBSTRUCTIVE PULMONARY DISEASE
     Dosage: .5 DOSAGE FORMS DAILY;
     Route: 048
     Dates: start: 20130803
  4. FOLSAEURE [Concomitant]
     Dosage: 1 DOSAGE FORMS DAILY;
     Route: 048
     Dates: start: 20130803

REACTIONS (2)
  - Injury [Fatal]
  - Subdural haematoma [Fatal]
